FAERS Safety Report 14620607 (Version 1)
Quarter: 2018Q1

REPORT INFORMATION
  Report Type: Spontaneous
  Country: US (occurrence: US)
  Receive Date: 20180309
  Receipt Date: 20180309
  Transmission Date: 20180509
  Serious: Yes (Hospitalization)
  Sender: FDA-Public Use
  Company Number: US-NOVOPROD-588722

PATIENT
  Age: 31 Year
  Sex: Male

DRUGS (2)
  1. NOVOLIN 70/30 [Suspect]
     Active Substance: INSULIN HUMAN
     Dosage: 30 U, BID
     Route: 058
     Dates: start: 20180221
  2. NOVOLIN 70/30 [Suspect]
     Active Substance: INSULIN HUMAN
     Indication: TYPE 1 DIABETES MELLITUS
     Dosage: 30 U, BID
     Route: 058
     Dates: end: 20180220

REACTIONS (3)
  - Diabetic ketoacidosis [Recovered/Resolved]
  - Product colour issue [Not Recovered/Not Resolved]
  - Product contamination physical [Not Recovered/Not Resolved]

NARRATIVE: CASE EVENT DATE: 20180221
